FAERS Safety Report 6712439-X (Version None)
Quarter: 2010Q2

REPORT INFORMATION
  Report Type: 
  Country: None (occurrence: None)
  Receive Date: 20100506
  Receipt Date: 20100426
  Transmission Date: 20101027
  Serious: Yes (Other)
  Sender: FDA-Public Use
  Company Number: US-BIOGENIDEC-2009BI031886

PATIENT
  Age: 59 Year
  Sex: Female
  Weight: 78 kg

DRUGS (14)
  1. AVONEX [Suspect]
     Indication: MULTIPLE SCLEROSIS
     Route: 030
     Dates: end: 20090801
  2. OMEPRAZOLE [Concomitant]
  3. BUPROPION HCL [Concomitant]
  4. METFORMIN HCL [Concomitant]
  5. GLYBURIDE [Concomitant]
  6. GABAPENTIN [Concomitant]
  7. TRAZODONE HCL [Concomitant]
  8. OXYCONTIN [Concomitant]
  9. OXYCONTIN [Concomitant]
  10. FLONASE [Concomitant]
     Route: 055
  11. METHYLSULFONYLMETHANE [Concomitant]
  12. CHONDROITIN SULFATE [Concomitant]
  13. OSTEO-FLEX [Concomitant]
  14. GLUCOSAMINE HCL [Concomitant]

REACTIONS (9)
  - ABDOMINAL PAIN [None]
  - ASTHENIA [None]
  - DIFFUSE LARGE B-CELL LYMPHOMA [None]
  - HYPOPHAGIA [None]
  - LYMPHADENOPATHY [None]
  - MICROCYTIC ANAEMIA [None]
  - MULTIPLE ALLERGIES [None]
  - NIGHT SWEATS [None]
  - WEIGHT DECREASED [None]
